FAERS Safety Report 25738640 (Version 2)
Quarter: 2025Q4

REPORT INFORMATION
  Report Type: Spontaneous
  Country: US (occurrence: US)
  Receive Date: 20250829
  Receipt Date: 20251122
  Transmission Date: 20260118
  Serious: No
  Sender: MDD OPERATIONS
  Company Number: US-002147023-MDD202507-002381

PATIENT
  Age: 61 Year
  Sex: Male

DRUGS (2)
  1. ONAPGO [Suspect]
     Active Substance: APOMORPHINE HYDROCHLORIDE
     Indication: Parkinson^s disease
  2. ONAPGO [Suspect]
     Active Substance: APOMORPHINE HYDROCHLORIDE
     Indication: On and off phenomenon
     Dosage: 1 CARTRIDGE, 98MG/20ML, INFUSE CONTENTS OF 1 CARTRIDGE UNDER THE SKIN FOR 16 HOURS OR LESS EACH DAY
     Route: 058
     Dates: start: 202506

REACTIONS (7)
  - Injection site haemorrhage [Not Recovered/Not Resolved]
  - Injection site bruising [Recovering/Resolving]
  - Dizziness [Recovered/Resolved]
  - Somnolence [Recovered/Resolved]
  - Infusion site erythema [Recovered/Resolved]
  - Injection site erythema [Recovered/Resolved]
  - Injection site irritation [Recovered/Resolved]

NARRATIVE: CASE EVENT DATE: 20250101
